FAERS Safety Report 4617951-5 (Version None)
Quarter: 2005Q1

REPORT INFORMATION
  Report Type: 
  Country: None (occurrence: None)
  Receive Date: 20050322
  Receipt Date: 20050309
  Transmission Date: 20050727
  Serious: Yes (Other)
  Sender: FDA-Public Use
  Company Number: 200415829BCC

PATIENT
  Age: 44 Year
  Sex: Female
  Weight: 35.8342 kg

DRUGS (7)
  1. ASPIRIN [Suspect]
     Indication: HEADACHE
     Dosage: QD, ORAL
     Route: 048
  2. ASPIRIN [Suspect]
     Indication: MYOCARDIAL INFARCTION
     Dosage: QD, ORAL
     Route: 048
  3. ASPIRIN [Suspect]
     Indication: PERIPHERAL VASCULAR DISORDER
     Dosage: QD, ORAL
     Route: 048
  4. LISINOPRIL [Concomitant]
  5. LIPITOR [Concomitant]
  6. ADVAIR DISKUS 100/50 [Concomitant]
  7. CENTRUM [Concomitant]

REACTIONS (13)
  - ANOREXIA [None]
  - DIARRHOEA [None]
  - DIZZINESS [None]
  - DRUG ABUSER [None]
  - DUODENITIS [None]
  - FAECES DISCOLOURED [None]
  - GASTRITIS [None]
  - INTESTINAL ANGINA [None]
  - MEDICATION ERROR [None]
  - MESENTERIC ARTERY STENOSIS [None]
  - PEPTIC ULCER [None]
  - RENAL ARTERY STENOSIS [None]
  - WEIGHT DECREASED [None]
